FAERS Safety Report 7400446-3 (Version None)
Quarter: 2011Q2

REPORT INFORMATION
  Report Type: 
  Country: None (occurrence: None)
  Receive Date: 20110407
  Receipt Date: 20110330
  Transmission Date: 20111010
  Serious: Yes (Death, Other)
  Sender: FDA-Public Use
  Company Number: US-BAXTER-2011BH003646

PATIENT
  Age: 65 Year
  Sex: Female

DRUGS (2)
  1. HEPARIN SODIUM INJECTION [Suspect]
     Indication: THROMBOSIS PROPHYLAXIS
     Route: 058
     Dates: start: 20071001, end: 20071101
  2. KEPPRA [Concomitant]
     Indication: CONVULSION
     Route: 065

REACTIONS (5)
  - THROMBOCYTOPENIA [None]
  - SEPSIS [None]
  - CARDIO-RESPIRATORY ARREST [None]
  - CONVULSION [None]
  - CHEST PAIN [None]
